FAERS Safety Report 6449310-7 (Version None)
Quarter: 2009Q4

REPORT INFORMATION
  Report Type: 
  Country: None (occurrence: None)
  Receive Date: 20091120
  Receipt Date: 20091110
  Transmission Date: 20100525
  Serious: Yes (Other)
  Sender: FDA-Public Use
  Company Number: US-WYE-H11366009

PATIENT
  Sex: Male

DRUGS (7)
  1. PRISTIQ [Suspect]
     Indication: DEPRESSION
     Route: 048
     Dates: start: 20090316, end: 20090301
  2. PRISTIQ [Suspect]
     Dosage: PATIENT TRIED TAKING HALF A TABLET
     Route: 048
     Dates: start: 20090301, end: 20090323
  3. PRISTIQ [Suspect]
     Dosage: UNKNOWN
     Route: 048
     Dates: start: 20090101
  4. FISH OIL, HYDROGENATED [Concomitant]
  5. EFFEXOR XR [Suspect]
     Indication: DEPRESSION
     Dosage: UNKNOWN
     Route: 048
     Dates: start: 19930101
  6. EFFEXOR XR [Suspect]
     Dosage: UNKNOWN
     Route: 048
     Dates: end: 20070101
  7. ONE-A-DAY [Concomitant]

REACTIONS (3)
  - DIARRHOEA [None]
  - SUICIDAL IDEATION [None]
  - SUICIDE ATTEMPT [None]
